FAERS Safety Report 6877189-8 (Version None)
Quarter: 2010Q3

REPORT INFORMATION
  Report Type: 
  Country: None (occurrence: None)
  Receive Date: 20100727
  Receipt Date: 20100715
  Transmission Date: 20110219
  Serious: Yes (Hospitalization)
  Sender: FDA-Public Use
  Company Number: SE-AMGEN-US319348

PATIENT
  Sex: Male

DRUGS (6)
  1. ENBREL [Suspect]
     Indication: RHEUMATOID ARTHRITIS
     Dosage: DOSE UNKNOWN
     Dates: start: 20070815, end: 20080601
  2. E-VIMIN [Concomitant]
  3. STILNOCT [Concomitant]
  4. CALCICHEW [Concomitant]
  5. WARAN [Concomitant]
  6. TAVEGYL [Concomitant]

REACTIONS (1)
  - PROSTATE CANCER METASTATIC [None]
